FAERS Safety Report 4694620-7 (Version None)
Quarter: 2005Q2

REPORT INFORMATION
  Report Type: 
  Country: None (occurrence: None)
  Receive Date: 20050617
  Receipt Date: 20050603
  Transmission Date: 20051028
  Serious: Yes (Death)
  Sender: FDA-Public Use
  Company Number: 2005BI010800

PATIENT
  Age: 74 Year
  Sex: Male
  Weight: 117.9352 kg

DRUGS (7)
  1. AMEVIVE [Suspect]
     Indication: PSORIASIS
     Dosage: 15 MG; QW; IM
     Route: 030
     Dates: start: 20041004, end: 20041222
  2. ADVAIR [Concomitant]
  3. COMBIVENT [Concomitant]
  4. LOVASTATIN [Concomitant]
  5. BENICAR HCT [Concomitant]
  6. ZYRTEC [Concomitant]
  7. ALBUTEROL [Concomitant]

REACTIONS (2)
  - INJURY [None]
  - ROAD TRAFFIC ACCIDENT [None]
